FAERS Safety Report 4717347-1 (Version None)
Quarter: 2005Q3

REPORT INFORMATION
  Report Type: 
  Country: None (occurrence: None)
  Receive Date: 20050718
  Receipt Date: 20050711
  Transmission Date: 20060218
  Serious: Yes (Other)
  Sender: FDA-Public Use
  Company Number: 005201

PATIENT
  Sex: Female

DRUGS (4)
  1. MEDROXYPROGESTERONE ACETATE [Suspect]
     Dates: start: 19950301, end: 19990301
  2. PREMPRO [Suspect]
     Dates: start: 19950301, end: 19990301
  3. PROVERA [Suspect]
     Dates: start: 19950301, end: 19990301
  4. OGEN [Suspect]
     Dates: start: 19950301, end: 19990301

REACTIONS (1)
  - BREAST CANCER FEMALE [None]
